FAERS Safety Report 8402621-8 (Version None)
Quarter: 2012Q2

REPORT INFORMATION
  Report Type: 
  Country: None (occurrence: None)
  Receive Date: 20120323
  Receipt Date: 20110617
  Transmission Date: 20120825
  Serious: Yes (Hospitalization)
  Sender: FDA-Public Use
  Company Number: 163-21880-10101918

PATIENT
  Age: 75 Year
  Sex: Male

DRUGS (3)
  1. REVLIMID [Suspect]
     Indication: MULTIPLE MYELOMA
     Dosage: 25;40 MG, 1 IN 1 D, PO
     Route: 048
     Dates: start: 20100802, end: 20101001
  2. MIRALAX [Concomitant]
  3. DEXAMETHASONE [Concomitant]

REACTIONS (3)
  - PLATELET COUNT DECREASED [None]
  - MULTIPLE MYELOMA [None]
  - WHITE BLOOD CELL COUNT DECREASED [None]
